FAERS Safety Report 18501660 (Version 1)
Quarter: 2020Q4

REPORT INFORMATION
  Report Type: Spontaneous
  Country: US (occurrence: US)
  Receive Date: 20201113
  Receipt Date: 20201113
  Transmission Date: 20210114
  Serious: Yes (Hospitalization)
  Sender: FDA-Public Use
  Company Number: None

PATIENT
  Age: 61 Year
  Sex: Female

DRUGS (10)
  1. METOPROL TAR [Concomitant]
  2. PROMETHAZINE [Concomitant]
     Active Substance: PROMETHAZINE HYDROCHLORIDE
  3. ONDANSETRON [Concomitant]
     Active Substance: ONDANSETRON
  4. TRAMADOL. [Concomitant]
     Active Substance: TRAMADOL
  5. LIDOCAINE. [Concomitant]
     Active Substance: LIDOCAINE
  6. WARFARIN [Concomitant]
     Active Substance: WARFARIN
  7. EXEMESTANE. [Concomitant]
     Active Substance: EXEMESTANE
  8. LIDO/PRILOCN [Concomitant]
  9. EVEROLIMUS. [Suspect]
     Active Substance: EVEROLIMUS
     Indication: BREAST CANCER
     Route: 048
     Dates: start: 20200812
  10. POT CHLORIDE [Concomitant]
     Active Substance: POTASSIUM CHLORIDE

REACTIONS (1)
  - Hospitalisation [None]

NARRATIVE: CASE EVENT DATE: 20201005
